FAERS Safety Report 7061094-0 (Version None)
Quarter: 2010Q4

REPORT INFORMATION
  Report Type: 
  Country: None (occurrence: None)
  Receive Date: 20101026
  Receipt Date: 20101016
  Transmission Date: 20110411
  Serious: Yes (Hospitalization, Other)
  Sender: FDA-Public Use
  Company Number: IN-PFIZER INC-2010131978

PATIENT
  Age: 58 Year
  Sex: Male

DRUGS (3)
  1. ATORVASTATIN CALCIUM [Suspect]
     Indication: HYPERLIPIDAEMIA
     Dosage: 10 MG, UNK
  2. FERROUS SULFATE [Suspect]
     Indication: ANAEMIA
     Dosage: UNK
  3. RANITIDINE [Suspect]
     Indication: DYSPEPSIA
     Dosage: UNK

REACTIONS (1)
  - PANCREATITIS ACUTE [None]
